FAERS Safety Report 23738189 (Version 10)
Quarter: 2025Q3

REPORT INFORMATION
  Report Type: Report from Study
  Country: ZA (occurrence: ZA)
  Receive Date: 20240412
  Receipt Date: 20250801
  Transmission Date: 20251020
  Serious: Yes (Life-Threatening, Hospitalization)
  Sender: PFIZER
  Company Number: ZA-PFIZER INC-PV202400047566

PATIENT
  Age: 20 Year
  Sex: Male

DRUGS (16)
  1. LINEZOLID [Suspect]
     Active Substance: LINEZOLID
     Indication: Pulmonary tuberculosis
     Dosage: 600 MG, 1X/DAY
     Route: 048
     Dates: start: 20240209, end: 20240316
  2. LINEZOLID [Suspect]
     Active Substance: LINEZOLID
     Indication: Pulmonary tuberculosis
     Dosage: 1200 MG, 1X/DAY
     Route: 048
     Dates: start: 20231005, end: 20231106
  3. LINEZOLID [Suspect]
     Active Substance: LINEZOLID
     Route: 048
     Dates: start: 20231107, end: 20240116
  4. LEVOFLOXACIN [Suspect]
     Active Substance: LEVOFLOXACIN
     Indication: Pulmonary tuberculosis
     Dosage: 1 G, 1X/DAY
     Route: 048
     Dates: start: 20240209, end: 20240316
  5. MEROPENEM [Suspect]
     Active Substance: MEROPENEM
     Indication: Pulmonary tuberculosis
     Dosage: 2 G, 2X/DAY (INTRAVASCULAR)
     Dates: start: 20240209, end: 20240316
  6. DELAMANID [Suspect]
     Active Substance: DELAMANID
     Indication: Pulmonary tuberculosis
     Dosage: 300 MG, 1X/DAY
     Route: 048
     Dates: start: 20231005, end: 20240116
  7. DELAMANID [Suspect]
     Active Substance: DELAMANID
     Indication: Pulmonary tuberculosis
     Dosage: 100 MG, 2X/DAY
     Route: 048
     Dates: start: 20240209, end: 20240316
  8. BEDAQUILINE [Suspect]
     Active Substance: BEDAQUILINE
     Indication: Pulmonary tuberculosis
     Dosage: 200 MG, QD
     Route: 048
     Dates: start: 20231006, end: 20231205
  9. BEDAQUILINE [Suspect]
     Active Substance: BEDAQUILINE
     Dosage: 100 MG, 1X/DAY
     Route: 048
     Dates: start: 20231206, end: 20240116
  10. CLOFAZIMINE [Suspect]
     Active Substance: CLOFAZIMINE
     Indication: Pulmonary tuberculosis
     Dosage: 300 MG, 1X/DAY
     Route: 048
     Dates: start: 20231005, end: 20231023
  11. CLOFAZIMINE [Suspect]
     Active Substance: CLOFAZIMINE
     Dosage: 100 MG, 1X/DAY
     Route: 048
     Dates: start: 20231024, end: 20240116
  12. TERIZIDONE [Suspect]
     Active Substance: TERIZIDONE
     Indication: Pulmonary tuberculosis
     Dosage: 750 MG, 1X/DAY
     Route: 048
     Dates: start: 20240209, end: 20240316
  13. ISONIAZID [Suspect]
     Active Substance: ISONIAZID
     Indication: Pulmonary tuberculosis
     Dosage: 700 MG, 1X/DAY
     Route: 048
     Dates: start: 20240209, end: 20240316
  14. PYRAZINAMIDE [Suspect]
     Active Substance: PYRAZINAMIDE
     Indication: Pulmonary tuberculosis
     Dosage: 1750 MG, 1X/DAY
     Route: 048
     Dates: start: 20240209, end: 20240316
  15. AUGMENTIN [Suspect]
     Active Substance: AMOXICILLIN\CLAVULANATE POTASSIUM
     Indication: Pulmonary tuberculosis
     Dosage: 375 MG, 1X/DAY
     Route: 048
     Dates: start: 20240209, end: 20240316
  16. PYRIDOXINE [Concomitant]
     Active Substance: PYRIDOXINE
     Indication: Prophylaxis
     Dosage: APPROXIMATE DURATION OF USE: 5 WEEKS, 1X/DAY
     Route: 048

REACTIONS (1)
  - Drug reaction with eosinophilia and systemic symptoms [Recovered/Resolved]

NARRATIVE: CASE EVENT DATE: 20240322
